FAERS Safety Report 6733024-X (Version None)
Quarter: 2010Q2

REPORT INFORMATION
  Report Type: 
  Country: None (occurrence: None)
  Receive Date: 20100519
  Receipt Date: 20100517
  Transmission Date: 20101027
  Serious: Yes (Hospitalization, Other)
  Sender: FDA-Public Use
  Company Number: US-ABBOTT-08P-163-0473231-01

PATIENT
  Sex: Male
  Weight: 49.486 kg

DRUGS (19)
  1. HUMIRA [Suspect]
     Indication: CROHN'S DISEASE
     Route: 058
     Dates: start: 20080304, end: 20080806
  2. IV FLUIDS [Concomitant]
     Indication: NUTRITIONAL SUPPORT
     Route: 042
     Dates: start: 20080609, end: 20080612
  3. IV FLUIDS [Concomitant]
  4. ZOSYN [Concomitant]
     Indication: INFECTION PROPHYLAXIS
     Route: 042
     Dates: start: 20080609, end: 20080614
  5. ZOSYN [Concomitant]
     Indication: DRUG THERAPY
  6. DILAUDID [Concomitant]
     Indication: PAIN
     Dates: start: 20080609, end: 20080614
  7. PERCOCET [Concomitant]
     Indication: PAIN
     Dosage: 1/2 OR 1 PILL
     Route: 048
     Dates: start: 20080614, end: 20080620
  8. PAROXETINE [Concomitant]
     Indication: DEPRESSION
     Dates: start: 20080614
  9. CIPRO [Concomitant]
     Indication: INFECTION PROPHYLAXIS
     Route: 048
     Dates: start: 20080614, end: 20080620
  10. CIPRO [Concomitant]
     Indication: DRUG THERAPY
  11. FLAGYL [Concomitant]
     Indication: INFECTION PROPHYLAXIS
     Dates: start: 20080614, end: 20080621
  12. FLAGYL [Concomitant]
     Indication: DRUG THERAPY
  13. FLOMAX [Concomitant]
     Indication: CALCULUS URETERIC
     Dates: start: 20080614
  14. PHENAZOPYRIDINE HCL TAB [Concomitant]
     Indication: RENAL COLIC
     Dates: start: 20080614
  15. VALTREX [Concomitant]
     Indication: RASH VESICULAR
  16. VALTREX [Concomitant]
  17. DIFLUCAN [Concomitant]
     Indication: APHTHOUS STOMATITIS
     Dates: start: 20080806, end: 20080811
  18. DIFLUCAN [Concomitant]
     Indication: RASH PUSTULAR
  19. DIFLUCAN [Concomitant]
     Indication: RASH VESICULAR

REACTIONS (1)
  - CROHN'S DISEASE [None]
